FAERS Safety Report 6221679-8 (Version None)
Quarter: 2009Q2

REPORT INFORMATION
  Report Type: 
  Country: None (occurrence: None)
  Receive Date: 20090608
  Receipt Date: 20090602
  Transmission Date: 20091009
  Serious: Yes (Other)
  Sender: FDA-Public Use
  Company Number: US-WYE-H09575209

PATIENT
  Age: 20 Year
  Sex: Male

DRUGS (1)
  1. ROBITUSSIN COUGH AND CHEST CONGESTION DM (DEXTROMETHORPHAN HYDROBROMID [Suspect]
     Indication: DRUG DEPENDENCE
     Dosage: ORAL
     Route: 048

REACTIONS (4)
  - DRUG DEPENDENCE [None]
  - IMPAIRED DRIVING ABILITY [None]
  - IMPRISONMENT [None]
  - LOSS OF EMPLOYMENT [None]
